FAERS Safety Report 7555824-9 (Version None)
Quarter: 2011Q2

REPORT INFORMATION
  Report Type: 
  Country: None (occurrence: None)
  Receive Date: 20110618
  Receipt Date: 20110127
  Transmission Date: 20111010
  Serious: Yes (Hospitalization)
  Sender: FDA-Public Use
  Company Number: US-BAYER-201028487NA

PATIENT
  Age: 22 Year
  Sex: Female

DRUGS (6)
  1. YASMIN [Suspect]
     Indication: CONTRACEPTION
  2. YAZ [Suspect]
     Indication: CONTRACEPTION
  3. YASMIN [Suspect]
     Indication: PREMENSTRUAL SYNDROME
  4. YASMIN [Suspect]
     Indication: ACNE
  5. YAZ [Suspect]
     Indication: ACNE
     Dosage: UNK UNK, UNK
     Route: 048
     Dates: start: 20030101, end: 20060101
  6. YAZ [Suspect]
     Indication: PREMENSTRUAL SYNDROME

REACTIONS (9)
  - ABDOMINAL RIGIDITY [None]
  - MENTAL DISORDER [None]
  - NAUSEA [None]
  - DIZZINESS [None]
  - PAIN [None]
  - CHOLELITHIASIS [None]
  - IMPAIRED GASTRIC EMPTYING [None]
  - VOMITING [None]
  - PANIC ATTACK [None]
